FAERS Safety Report 5878326-4 (Version None)
Quarter: 2008Q3

REPORT INFORMATION
  Report Type: 
  Country: None (occurrence: None)
  Receive Date: 20080911
  Receipt Date: 20080904
  Transmission Date: 20090109
  Serious: Yes (Other)
  Sender: FDA-Public Use
  Company Number: JP-ABBOTT-08P-087-0474745-00

PATIENT
  Age: 4 Year
  Sex: Female

DRUGS (3)
  1. SEVOFLURANE [Suspect]
     Indication: INDUCTION OF ANAESTHESIA
     Dosage: 2-3%
  2. OXYGEN [Concomitant]
     Indication: INDUCTION OF ANAESTHESIA
  3. NITROUS OXIDE [Concomitant]
     Indication: INDUCTION OF ANAESTHESIA

REACTIONS (1)
  - GRAND MAL CONVULSION [None]
